FAERS Safety Report 18004624 (Version 2)
Quarter: 2020Q3

REPORT INFORMATION
  Report Type: Spontaneous
  Country: US (occurrence: US)
  Receive Date: 20200709
  Receipt Date: 20200807
  Transmission Date: 20201103
  Serious: No
  Sender: FDA-Public Use
  Company Number: US-GLAXOSMITHKLINE-US2020AMR124005

PATIENT
  Sex: Female

DRUGS (1)
  1. ZEJULA [Suspect]
     Active Substance: NIRAPARIB
     Indication: FALLOPIAN TUBE CANCER
     Dosage: 200 MG, QD IN THE PM WITHOUT FOOD
     Route: 065
     Dates: start: 20200622

REACTIONS (4)
  - Dizziness [Unknown]
  - Asthenia [Unknown]
  - Constipation [Unknown]
  - Feeling abnormal [Unknown]
